FAERS Safety Report 8008108-9 (Version None)
Quarter: 2011Q4

REPORT INFORMATION
  Report Type: 
  Country: None (occurrence: None)
  Receive Date: 20111227
  Receipt Date: 20111221
  Transmission Date: 20120403
  Serious: Yes (Other)
  Sender: FDA-Public Use
  Company Number: PHEH2011US009109

PATIENT
  Sex: Male
  Weight: 165 kg

DRUGS (2)
  1. GILENYA [Suspect]
     Indication: MULTIPLE SCLEROSIS
     Dosage: 0.5 MG, QD
     Route: 048
     Dates: start: 20110921, end: 20111110
  2. NICOTINE [Concomitant]
     Dosage: UNK UKN, UNK

REACTIONS (1)
  - ATRIAL FLUTTER [None]
